FAERS Safety Report 15167878 (Version 4)
Quarter: 2019Q1

REPORT INFORMATION
  Report Type: Spontaneous
  Country: GB (occurrence: GB)
  Receive Date: 20180719
  Receipt Date: 20190215
  Transmission Date: 20190417
  Serious: Yes (Hospitalization, Other)
  Sender: FDA-Public Use
  Company Number: GB-NOVOPROD-610789

PATIENT
  Sex: Female

DRUGS (1)
  1. FIASP [Suspect]
     Active Substance: INSULIN ASPART
     Indication: DIABETES MELLITUS
     Dosage: UNK
     Route: 065

REACTIONS (7)
  - Premature delivery [Recovered/Resolved]
  - Seizure [Unknown]
  - Exposure during pregnancy [Recovered/Resolved]
  - Hypertension [Unknown]
  - Malaise [Unknown]
  - Dyspnoea [Unknown]
  - Caesarean section [Unknown]
